FAERS Safety Report 18245470 (Version 1)
Quarter: 2020Q3

REPORT INFORMATION
  Report Type: Spontaneous
  Country: US (occurrence: US)
  Receive Date: 20200908
  Receipt Date: 20200908
  Transmission Date: 20201103
  Serious: Yes (Life-Threatening, Disabling)
  Sender: FDA-Public Use
  Company Number: None

PATIENT
  Age: 57 Year
  Sex: Male
  Weight: 77.11 kg

DRUGS (1)
  1. EQUATE HAND SANITIZER [Suspect]
     Active Substance: ALCOHOL
     Indication: COVID-19 PROPHYLAXIS
     Dosage: 30 OUNCE(S)
     Route: 061
     Dates: start: 20200902, end: 20200903

REACTIONS (3)
  - Dry skin [None]
  - Manufacturing issue [None]
  - Manufacturing materials issue [None]

NARRATIVE: CASE EVENT DATE: 20200902
